FAERS Safety Report 21869631 (Version 5)
Quarter: 2023Q2

REPORT INFORMATION
  Report Type: Report from Study
  Country: CA (occurrence: CA)
  Receive Date: 20230117
  Receipt Date: 20230411
  Transmission Date: 20230722
  Serious: Yes (Hospitalization)
  Sender: FDA-Public Use
  Company Number: CA-002147023-NVSC2023CA008620

PATIENT
  Age: 57 Year
  Sex: Male

DRUGS (1)
  1. ERELZI [Suspect]
     Active Substance: ETANERCEPT-SZZS
     Indication: Ankylosing spondylitis
     Dosage: 50 MG, QW
     Route: 058
     Dates: start: 20220809

REACTIONS (3)
  - Illness [Recovering/Resolving]
  - Wound dehiscence [Unknown]
  - Inappropriate schedule of product administration [Unknown]
